FAERS Safety Report 5710816-7 (Version None)
Quarter: 2008Q2

REPORT INFORMATION
  Report Type: 
  Country: None (occurrence: None)
  Receive Date: 20080417
  Receipt Date: 20080417
  Transmission Date: 20081010
  Serious: Yes (Life-Threatening)
  Sender: FDA-Public Use
  Company Number: None

PATIENT
  Age: 47 Year
  Sex: Female
  Weight: 68.0396 kg

DRUGS (2)
  1. SINGULAIR [Suspect]
     Indication: ASTHMA
     Dosage: 10MG ONCE DAILY PO
     Route: 048
     Dates: start: 20080317, end: 20080328
  2. SINGULAIR [Suspect]
     Indication: MULTIPLE ALLERGIES
     Dosage: 10MG ONCE DAILY PO
     Route: 048
     Dates: start: 20080317, end: 20080328

REACTIONS (7)
  - ABNORMAL BEHAVIOUR [None]
  - ABNORMAL DREAMS [None]
  - AMNESIA [None]
  - ANGER [None]
  - MOOD ALTERED [None]
  - SLEEP DISORDER [None]
  - SUICIDAL IDEATION [None]
